FAERS Safety Report 22620780 (Version 4)
Quarter: 2024Q2

REPORT INFORMATION
  Report Type: Spontaneous
  Country: US (occurrence: US)
  Receive Date: 20230620
  Receipt Date: 20240419
  Transmission Date: 20240716
  Serious: Yes (Hospitalization, Other)
  Sender: FDA-Public Use
  Company Number: US-PFIZER INC-202300221959

PATIENT
  Age: 37 Year
  Sex: Female
  Weight: 61.23 kg

DRUGS (3)
  1. OXBRYTA [Suspect]
     Active Substance: VOXELOTOR
     Indication: Sickle cell disease
     Dosage: 500 MG, 3X/DAY
  2. OXBRYTA [Suspect]
     Active Substance: VOXELOTOR
     Dosage: 500MG 3 TABLETS ONCE DAILY
     Route: 048
     Dates: start: 202306
  3. FOLIC ACID [Concomitant]
     Active Substance: FOLIC ACID
     Indication: Sickle cell disease
     Dosage: 1 MG, 1X/DAY (1 TABLET A DAY)

REACTIONS (2)
  - Sickle cell anaemia with crisis [Recovered/Resolved]
  - Dizziness [Unknown]
